FAERS Safety Report 9436075 (Version 1)
Quarter: 2013Q3

REPORT INFORMATION
  Report Type: Spontaneous
  Country: GB (occurrence: GB)
  Receive Date: 20130801
  Receipt Date: 20130801
  Transmission Date: 20140515
  Serious: Yes (Life-Threatening)
  Sender: FDA-Public Use
  Company Number: PHHY2013GB080427

PATIENT
  Age: 79 Year
  Sex: Male
  Weight: 73 kg

DRUGS (8)
  1. BISOPROLOL [Suspect]
     Dosage: 5 MG, UNK
  2. CLARITYN [Interacting]
     Indication: SEASONAL ALLERGY
     Dosage: 10 MG, QD
     Route: 048
     Dates: start: 20130610, end: 20130716
  3. PERINDOPRIL [Concomitant]
     Dosage: 8 MG, UNK
  4. SIMVASTATIN [Concomitant]
     Dosage: 10 MG, UNK
  5. ASPIRIN [Concomitant]
     Dosage: 75 MG, UNK
  6. AMITRIPTYLINE [Concomitant]
     Dosage: 10 MG, UNK
  7. NASONEX [Concomitant]
  8. VENTOLIN [Concomitant]

REACTIONS (1)
  - Drug interaction [Not Recovered/Not Resolved]
